FAERS Safety Report 13538442 (Version 1)
Quarter: 2017Q2

REPORT INFORMATION
  Report Type: Report from Study
  Country: US (occurrence: US)
  Receive Date: 20170512
  Receipt Date: 20170512
  Transmission Date: 20170830
  Serious: No
  Sender: FDA-Public Use
  Company Number: US-BIOVITRUM-2016US0799

PATIENT
  Age: 13 Year
  Sex: Female
  Weight: 92.9 kg

DRUGS (4)
  1. ORFADIN [Suspect]
     Active Substance: NITISINONE
     Dosage: 40 MG
     Route: 048
     Dates: start: 201610
  2. PROAIR HFA [Concomitant]
     Active Substance: ALBUTEROL SULFATE
  3. SYMBICORT [Concomitant]
     Active Substance: BUDESONIDE\FORMOTEROL FUMARATE DIHYDRATE
  4. ORFADIN [Suspect]
     Active Substance: NITISINONE
     Indication: TYROSINAEMIA
     Dosage: 30 MG
     Route: 048
     Dates: start: 20140415

REACTIONS (4)
  - Eye irritation [Not Recovered/Not Resolved]
  - Corneal deposits [Unknown]
  - Amino acid level increased [Unknown]
  - Urine analysis abnormal [Unknown]

NARRATIVE: CASE EVENT DATE: 20160905
